FAERS Safety Report 23155117 (Version 1)
Quarter: 2023Q4

REPORT INFORMATION
  Report Type: Spontaneous
  Country: US (occurrence: US)
  Receive Date: 20231107
  Receipt Date: 20231107
  Transmission Date: 20240110
  Serious: Yes (Other)
  Sender: FDA-Public Use
  Company Number: US-LEADIANT BIOSCIENCES INC-2023STPI000155

PATIENT
  Age: 43 Year
  Sex: Male

DRUGS (2)
  1. CYSTARAN [Suspect]
     Active Substance: CYSTEAMINE HYDROCHLORIDE
     Indication: Corneal dystrophy
     Dosage: INSTILL 1 DROPS EVERY WAKING HOUR APPROXIMATELY EVERY ONE TO TWO HOURS
     Route: 047
  2. CYSTARAN [Suspect]
     Active Substance: CYSTEAMINE HYDROCHLORIDE
     Dosage: INSTILL 1 DROP INNTO BOTH EYE 6 TIMES EVERY DAY WHILE AWAKE
     Route: 047

REACTIONS (3)
  - Eye pain [Recovered/Resolved]
  - Eye irritation [Not Recovered/Not Resolved]
  - Photophobia [Not Recovered/Not Resolved]

NARRATIVE: CASE EVENT DATE: 20230430
